FAERS Safety Report 10463466 (Version 1)
Quarter: 2014Q3

REPORT INFORMATION
  Report Type: Spontaneous
  Country: US (occurrence: None)
  Receive Date: 20140917
  Receipt Date: 20140917
  Transmission Date: 20150326
  Serious: Yes (Other)
  Sender: FDA-Public Use
  Company Number: 2524687

PATIENT
  Age: 15 Month
  Sex: Female

DRUGS (1)
  1. EPINEPHRINE. [Suspect]
     Active Substance: EPINEPHRINE
     Indication: BLOOD PRESSURE
     Route: 042
     Dates: start: 20140901, end: 20140901

REACTIONS (3)
  - Drug ineffective [None]
  - Blood pressure decreased [None]
  - Product quality issue [None]

NARRATIVE: CASE EVENT DATE: 20140901
